FAERS Safety Report 20429624 (Version 1)
Quarter: 2022Q1

REPORT INFORMATION
  Report Type: Report from Study
  Country: FR (occurrence: FR)
  Receive Date: 20220204
  Receipt Date: 20220204
  Transmission Date: 20220423
  Serious: Yes (Hospitalization)
  Sender: FDA-Public Use
  Company Number: FR-SERVIER-S19007980

PATIENT

DRUGS (8)
  1. PEGASPARGASE [Suspect]
     Active Substance: PEGASPARGASE
     Indication: Acute lymphocytic leukaemia
     Dosage: 1800 IU, ON DAYS 15 AND 43
     Route: 042
     Dates: start: 20190625
  2. CYCLOPHOSPHAMIDE [Suspect]
     Active Substance: CYCLOPHOSPHAMIDE
     Indication: Acute lymphocytic leukaemia
     Dosage: 1480 MG, ON DAYS 1 AND 29
     Route: 042
     Dates: start: 20190611, end: 20190709
  3. CYTARABINE [Suspect]
     Active Substance: CYTARABINE
     Indication: Acute lymphocytic leukaemia
     Dosage: 110 MG, ON DAYS 3-6, 10-13, 31-34, AND 38-41
     Route: 042
     Dates: start: 20190613
  4. CYTARABINE [Suspect]
     Active Substance: CYTARABINE
     Dosage: 30 MG, ON DAYS 3 AND 31
     Route: 037
     Dates: start: 20190613, end: 20190711
  5. HYDROCORTISONE [Suspect]
     Active Substance: HYDROCORTISONE
     Indication: Acute lymphocytic leukaemia
     Dosage: 15 MG, ON DAYS 3 AND 31
     Route: 037
     Dates: start: 20190613, end: 20190711
  6. METHOTREXATE [Suspect]
     Active Substance: METHOTREXATE
     Indication: Acute lymphocytic leukaemia
     Dosage: 15 MG, ON DAYS 3 AND 31
     Route: 037
     Dates: start: 20190613, end: 20190711
  7. VINCRISTINE SULFATE [Suspect]
     Active Substance: VINCRISTINE SULFATE
     Indication: Acute lymphocytic leukaemia
     Dosage: 2 MG, ON DAYS 15, 22, 43, AND 50
     Route: 042
     Dates: start: 20190625
  8. MERCAPTOPURINE [Suspect]
     Active Substance: MERCAPTOPURINE
     Indication: Acute lymphocytic leukaemia
     Dosage: 75 MG, ON DAYS 1-14 AND 29-42
     Route: 048
     Dates: start: 20190711

REACTIONS (5)
  - Pancreatitis acute [Recovered/Resolved]
  - Acute kidney injury [Recovered/Resolved]
  - Oedematous pancreatitis [Recovered/Resolved]
  - Cell death [Recovered/Resolved]
  - Hyperbilirubinaemia [Recovered/Resolved]

NARRATIVE: CASE EVENT DATE: 20190712
